FAERS Safety Report 19072710 (Version 2)
Quarter: 2021Q2

REPORT INFORMATION
  Report Type: Spontaneous
  Country: US (occurrence: US)
  Receive Date: 20210330
  Receipt Date: 20210423
  Transmission Date: 20210717
  Serious: Yes (Death, Other)
  Sender: FDA-Public Use
  Company Number: US-CLOVIS ONCOLOGY-CLO-2021-000290

PATIENT
  Age: 83 Year
  Sex: Female

DRUGS (3)
  1. RUBRACA [Suspect]
     Active Substance: RUCAPARIB CAMSYLATE
     Dosage: UNK DOSE, ONCE EVERY OTHER DAY
     Dates: end: 20210319
  2. RUBRACA [Suspect]
     Active Substance: RUCAPARIB CAMSYLATE
     Indication: OVARIAN CANCER
     Dosage: 250 MILLIGRAM, BID
     Route: 048
  3. RUBRACA [Suspect]
     Active Substance: RUCAPARIB CAMSYLATE
     Dosage: UNK DOSE, TWICE DAILY
     Dates: start: 2017

REACTIONS (10)
  - Death [Fatal]
  - Product dose omission issue [Unknown]
  - Lethargy [Recovering/Resolving]
  - Haematochezia [Recovered/Resolved]
  - Abnormal behaviour [Recovering/Resolving]
  - Communication disorder [Unknown]
  - Mobility decreased [Unknown]
  - Urinary tract infection [Unknown]
  - Liver disorder [Unknown]
  - Unresponsive to stimuli [Recovering/Resolving]

NARRATIVE: CASE EVENT DATE: 202102
